FAERS Safety Report 7249379-6 (Version None)
Quarter: 2011Q1

REPORT INFORMATION
  Report Type: 
  Country: None (occurrence: None)
  Receive Date: 20110128
  Receipt Date: 20101130
  Transmission Date: 20110831
  Serious: Yes (Hospitalization, Other)
  Sender: FDA-Public Use
  Company Number: US-BAYER-201027982NA

PATIENT
  Sex: Female

DRUGS (10)
  1. YAZ [Suspect]
     Indication: DYSMENORRHOEA
     Dosage: 1 TAB / DAY
     Route: 048
     Dates: start: 20071101, end: 20080601
  2. SUMATRIPTAN [Concomitant]
     Dosage: UNK
     Dates: start: 20000601
  3. MIRALAX [Concomitant]
  4. NAPROXEN [Concomitant]
  5. CHLORHEXIDINE GLUCONATE [Concomitant]
  6. BROMOCRIPTINE MESYLATE [Concomitant]
     Dosage: UNK
     Dates: start: 20080313
  7. CALCIUM CARBONATE [Concomitant]
  8. MELOXICAM [Concomitant]
  9. YASMIN [Suspect]
     Indication: PRODUCT USED FOR UNKNOWN INDICATION
     Route: 048
     Dates: start: 20080301
  10. MOTRIN [Concomitant]

REACTIONS (4)
  - DEEP VEIN THROMBOSIS [None]
  - FALL [None]
  - PAIN IN EXTREMITY [None]
  - LOSS OF CONSCIOUSNESS [None]
